FAERS Safety Report 8301697-6 (Version None)
Quarter: 2012Q2

REPORT INFORMATION
  Report Type: 
  Country: None (occurrence: None)
  Receive Date: 20120420
  Receipt Date: 20120414
  Transmission Date: 20120825
  Serious: Yes (Death)
  Sender: FDA-Public Use
  Company Number: PHHY2012GR033495

PATIENT

DRUGS (2)
  1. ANTI-THYMOCYTE GLOBULIN EQUINE NOS [Concomitant]
     Dosage: UNK UKN, UNK
  2. EVEROLIMUS [Suspect]
     Dosage: UNK UKN, UNK

REACTIONS (1)
  - DEATH [None]
